FAERS Safety Report 6009720-9 (Version None)
Quarter: 2008Q4

REPORT INFORMATION
  Report Type: 
  Country: None (occurrence: None)
  Receive Date: 20081217
  Receipt Date: 20081104
  Transmission Date: 20090506
  Serious: No
  Sender: FDA-Public Use
  Company Number: US-BAYER-200838095NA

PATIENT
  Sex: Female

DRUGS (1)
  1. YAZ [Suspect]
     Indication: MENOMETRORRHAGIA
     Route: 048
     Dates: start: 20080601, end: 20080601

REACTIONS (1)
  - VAGINAL HAEMORRHAGE [None]
